FAERS Safety Report 25717379 (Version 2)
Quarter: 2025Q3

REPORT INFORMATION
  Report Type: Report from Study
  Country: BR (occurrence: BR)
  Receive Date: 20250822
  Receipt Date: 20250828
  Transmission Date: 20251021
  Serious: Yes (Other)
  Sender: SANOFI AVENTIS
  Company Number: BR-SANOFI-02625502

PATIENT
  Age: 29 Year
  Sex: Female

DRUGS (1)
  1. DUPILUMAB [Suspect]
     Active Substance: DUPILUMAB
     Indication: Dermatitis atopic
     Dosage: 300 MG, QOW
     Route: 065
     Dates: start: 2019

REACTIONS (11)
  - Keratoconus [Unknown]
  - Pruritus [Unknown]
  - Dry skin [Recovering/Resolving]
  - Anxiety [Unknown]
  - Stress [Unknown]
  - Otitis media [Unknown]
  - Skin papilloma [Recovered/Resolved]
  - Skin exfoliation [Recovering/Resolving]
  - Erythema [Recovering/Resolving]
  - Therapeutic response shortened [Recovering/Resolving]
  - Therapeutic response decreased [Unknown]

NARRATIVE: CASE EVENT DATE: 20240101
